FAERS Safety Report 9844295 (Version 1)
Quarter: 2014Q1

REPORT INFORMATION
  Report Type: Spontaneous
  Country: ES (occurrence: None)
  Receive Date: 20140122
  Receipt Date: 20140122
  Transmission Date: 20141002
  Serious: Yes (Other)
  Sender: FDA-Public Use
  Company Number: 2014AP000281

PATIENT
  Age: 51 Year
  Sex: Female

DRUGS (2)
  1. LEVOFLOXACIN (LEVOFLOXACIN) [Suspect]
     Indication: PLEURAL EFFUSION
     Route: 048
  2. CEFTRIAXONE [Suspect]
     Indication: PLEURAL EFFUSION
     Route: 042

REACTIONS (4)
  - Hepatitis cholestatic [None]
  - Haemoglobin decreased [None]
  - Haemangioma of liver [None]
  - Renal disorder [None]
